FAERS Safety Report 12863388 (Version 1)
Quarter: 2016Q4

REPORT INFORMATION
  Report Type: Spontaneous
  Country: US (occurrence: US)
  Receive Date: 20161019
  Receipt Date: 20161019
  Transmission Date: 20170207
  Serious: No
  Sender: FDA-Public Use
  Company Number: US-OTSUKA-2016_019764

PATIENT
  Age: 31 Year
  Sex: Female

DRUGS (2)
  1. REXULTI [Suspect]
     Active Substance: BREXPIPRAZOLE
     Indication: BIPOLAR DISORDER
     Dosage: EXTRA DOSE OF 1MG
     Route: 065
     Dates: start: 20160809
  2. REXULTI [Suspect]
     Active Substance: BREXPIPRAZOLE
     Dosage: 1 MG, QD
     Route: 048
     Dates: start: 2016

REACTIONS (6)
  - Treatment noncompliance [Unknown]
  - Off label use [Unknown]
  - Drug dose omission [Unknown]
  - Anxiety [Unknown]
  - Extra dose administered [Unknown]
  - Tremor [Unknown]

NARRATIVE: CASE EVENT DATE: 2016
